FAERS Safety Report 9028991 (Version 1)
Quarter: 2013Q1

REPORT INFORMATION
  Report Type: Spontaneous
  Country: JP (occurrence: JP)
  Receive Date: 20130123
  Receipt Date: 20130123
  Transmission Date: 20140127
  Serious: Yes (Hospitalization)
  Sender: FDA-Public Use
  Company Number: PHHY2013JP005044

PATIENT
  Age: 76 Year
  Sex: Male

DRUGS (3)
  1. ZOMETA [Suspect]
     Indication: METASTASES TO BONE
  2. DENOSUMAB [Suspect]
     Indication: METASTASES TO BONE
     Dosage: UNK
     Dates: start: 201208
  3. DENOSUMAB [Suspect]
     Dosage: UNK
     Dates: start: 20121023

REACTIONS (2)
  - Osteonecrosis of jaw [Recovering/Resolving]
  - Oedema mouth [Unknown]
